FAERS Safety Report 18065685 (Version 1)
Quarter: 2020Q3

REPORT INFORMATION
  Report Type: Spontaneous
  Country: US (occurrence: US)
  Receive Date: 20200724
  Receipt Date: 20200724
  Transmission Date: 20201103
  Serious: Yes (Hospitalization)
  Sender: FDA-Public Use
  Company Number: None

PATIENT
  Age: 49 Year
  Sex: Female
  Weight: 40.8 kg

DRUGS (6)
  1. TOPOTECAN [Suspect]
     Active Substance: TOPOTECAN HYDROCHLORIDE
     Dates: end: 20200627
  2. FILGRASTIM [Concomitant]
     Active Substance: FILGRASTIM
  3. TRIAXONE [Concomitant]
  4. VIMOVO [Concomitant]
     Active Substance: ESOMEPRAZOLE MAGNESIUM\NAPROXEN
  5. TAZOPERAN [Concomitant]
  6. MYCAMINE [Concomitant]
     Active Substance: MICAFUNGIN SODIUM

REACTIONS (6)
  - Infection [None]
  - Catheter culture positive [None]
  - Device related infection [None]
  - Pyrexia [None]
  - Systemic candida [None]
  - Neutropenia [None]

NARRATIVE: CASE EVENT DATE: 20200627
